FAERS Safety Report 8833029 (Version 1)
Quarter: 2012Q4

REPORT INFORMATION
  Report Type: 
  Country: SE (occurrence: SE)
  Receive Date: 20121010
  Receipt Date: 20121010
  Transmission Date: 20130627
  Serious: Yes (Other)
  Sender: FDA-Public Use
  Company Number: SE-PFIZER INC-2012248994

PATIENT
  Age: 72 Year
  Sex: Male

DRUGS (1)
  1. CORDARONE [Suspect]
     Indication: PRODUCT USED FOR UNKNOWN INDICATION
     Dosage: UNK
     Route: 048
     Dates: start: 200709, end: 20080924

REACTIONS (2)
  - Optic neuropathy [Unknown]
  - Keratopathy [Recovered/Resolved]
